FAERS Safety Report 4598829-2 (Version None)
Quarter: 2005Q1

REPORT INFORMATION
  Report Type: 
  Country: None (occurrence: None)
  Receive Date: 20050304
  Receipt Date: 20041119
  Transmission Date: 20050727
  Serious: Yes (Death, Other)
  Sender: FDA-Public Use
  Company Number: US-BRISTOL-MYERS SQUIBB COMPANY-12770947

PATIENT
  Age: 44 Year
  Sex: Female

DRUGS (12)
  1. ABILIFY [Suspect]
     Indication: SCHIZOAFFECTIVE DISORDER
     Route: 048
     Dates: start: 20030813, end: 20040701
  2. CLOZAPINE [Suspect]
     Indication: SCHIZOAFFECTIVE DISORDER
     Route: 048
     Dates: start: 19930101, end: 20040701
  3. LEXAPRO [Concomitant]
     Indication: DEPRESSION
     Route: 048
     Dates: start: 20040101
  4. KLONOPIN [Concomitant]
     Indication: ANXIETY
     Dates: start: 19991201
  5. BENZTROPINE MESYLATE [Concomitant]
  6. LISINOPRIL [Concomitant]
  7. HUMULIN [Concomitant]
  8. METFORMIN HCL [Concomitant]
  9. LEVOXYL [Concomitant]
  10. ORTHO-NOVUM [Concomitant]
  11. NITROGLYCERIN [Concomitant]
  12. ATENOLOL [Concomitant]

REACTIONS (8)
  - CONVULSION [None]
  - DEATH [None]
  - DELUSION [None]
  - DRUG LEVEL INCREASED [None]
  - FEAR [None]
  - PARANOIA [None]
  - TREATMENT NONCOMPLIANCE [None]
  - WHITE BLOOD CELL COUNT INCREASED [None]
